FAERS Safety Report 12252339 (Version 1)
Quarter: 2016Q2

REPORT INFORMATION
  Report Type: Spontaneous
  Country: SE (occurrence: SE)
  Receive Date: 20160411
  Receipt Date: 20160411
  Transmission Date: 20160815
  Serious: Yes (Hospitalization)
  Sender: FDA-Public Use
  Company Number: SE-009507513-1604SWE004851

PATIENT
  Age: 23 Year
  Sex: Female

DRUGS (4)
  1. PROMETHAZINE [Suspect]
     Active Substance: PROMETHAZINE\PROMETHAZINE HYDROCHLORIDE
     Dosage: UNK
  2. PROPAVAN [Suspect]
     Active Substance: PROPIOMAZINE
     Dosage: UNK
  3. MIRTAZAPINE. [Suspect]
     Active Substance: MIRTAZAPINE
     Dosage: UNK
     Route: 048
  4. CITALOPRAM [Suspect]
     Active Substance: CITALOPRAM HYDROBROMIDE
     Dosage: UNK

REACTIONS (2)
  - Toxicity to various agents [Unknown]
  - Fatigue [Unknown]
